FAERS Safety Report 9629327 (Version 1)
Quarter: 2013Q4

REPORT INFORMATION
  Report Type: Spontaneous
  Country: CO (occurrence: CO)
  Receive Date: 20131017
  Receipt Date: 20131017
  Transmission Date: 20140711
  Serious: Yes (Hospitalization)
  Sender: FDA-Public Use
  Company Number: CO-PFIZER INC-2013293711

PATIENT
  Age: 3 Year
  Sex: Male
  Weight: 13 kg

DRUGS (5)
  1. GENOTROPIN [Suspect]
     Indication: RENAL FAILURE CHRONIC
     Dosage: 0.6 MG, 1X/DAY
     Route: 058
     Dates: start: 200912
  2. SODIUM BICARBONATE [Concomitant]
     Indication: RENAL FAILURE CHRONIC
     Dosage: 10 CC, EVERY 4 HOURS
     Route: 048
  3. SODIUM CARBONATE [Concomitant]
     Indication: RENAL FAILURE CHRONIC
     Dosage: 600 MG, 1X/DAY
     Route: 048
  4. FERROUS SULFATE [Concomitant]
     Indication: RENAL FAILURE CHRONIC
     Dosage: 10 DROPS, 2X/DAY
     Route: 048
  5. CALCITRIOL [Concomitant]
     Indication: RENAL FAILURE CHRONIC
     Dosage: 10 DROPS, 2X/DAY
     Route: 048

REACTIONS (1)
  - Pneumonia [Recovered/Resolved]
